FAERS Safety Report 8958566 (Version 1)
Quarter: 2012Q4

REPORT INFORMATION
  Report Type: Spontaneous
  Country: US (occurrence: None)
  Receive Date: 20121207
  Receipt Date: 20121207
  Transmission Date: 20130627
  Serious: Yes (Other)
  Sender: FDA-Public Use
  Company Number: None

PATIENT
  Sex: Female
  Weight: 19.2 kg

DRUGS (2)
  1. KEPPRA [Suspect]
     Indication: INTRACTABLE EPILEPSY
     Dosage: 4.5 mL TID PO
     Route: 048
     Dates: start: 20101101
  2. KEPPRA [Suspect]
     Indication: INTRACTABLE EPILEPSY
     Dosage: 4.5 mL TID PO
     Route: 048
     Dates: start: 20101101

REACTIONS (2)
  - Convulsion [None]
  - Product substitution issue [None]
